FAERS Safety Report 5842214-X (Version None)
Quarter: 2008Q3

REPORT INFORMATION
  Report Type: 
  Country: None (occurrence: None)
  Receive Date: 20080812
  Receipt Date: 20080731
  Transmission Date: 20090109
  Serious: Yes (Other)
  Sender: FDA-Public Use
  Company Number: US-WYE-H05360708

PATIENT
  Age: 61 Year
  Sex: Male

DRUGS (8)
  1. ATIVAN [Suspect]
     Dosage: ^TOOK SEVERAL TABLETS IN HIS SLEEP^
     Dates: start: 20030118, end: 20030118
  2. PHENERGAN HCL [Suspect]
     Dosage: ^MAY HAVE TAKEN AN UNSPECIFIED AMOUNT^
     Dates: start: 20030118, end: 20030118
  3. ACIPHEX [Concomitant]
     Dosage: UNKNOWN
  4. FLUOXETINE HYDROCHLORIDE [Concomitant]
     Dosage: UNKNOWN
  5. TEMAZEPAM [Concomitant]
     Dosage: UNKNOWN
  6. RAMIPRIL [Concomitant]
     Dosage: UNKNOWN
  7. ZOLPIDEM TARTRATE [Suspect]
     Indication: INSOMNIA
     Dosage: 10 MG PRN
  8. REGLAN [Suspect]
     Dosage: ^MAY HAVE TAKEN AN UNSPECIFIED AMOUNT^
     Dates: start: 20030118, end: 20030118

REACTIONS (4)
  - ABNORMAL SLEEP-RELATED EVENT [None]
  - DELIRIUM [None]
  - ROAD TRAFFIC ACCIDENT [None]
  - SOMNAMBULISM [None]
